FAERS Safety Report 9242227 (Version 4)
Quarter: 2013Q3

REPORT INFORMATION
  Report Type: Report from Study
  Country: US (occurrence: US)
  Receive Date: 20130419
  Receipt Date: 20130813
  Transmission Date: 20140515
  Serious: Yes (Hospitalization)
  Sender: FDA-Public Use
  Company Number: US-PFIZER INC-2013119722

PATIENT
  Age: 8 Year
  Sex: Female
  Weight: 22.1 kg

DRUGS (10)
  1. SERTRALINE HCL [Suspect]
     Indication: GENERALISED ANXIETY DISORDER
     Dosage: 6.25 MG, 1X/DAY
     Route: 048
     Dates: start: 20130313, end: 20130404
  2. SERTRALINE HCL [Suspect]
     Indication: SEASONAL AFFECTIVE DISORDER
     Dosage: 12.5 MG, 1X/DAY
     Route: 048
     Dates: start: 20130404, end: 20130414
  3. LEVSIN [Suspect]
     Indication: GASTROINTESTINAL DISORDER
     Dosage: UNK, 2X/DAY
     Route: 048
     Dates: start: 20130326, end: 20130413
  4. SINGULAIR [Concomitant]
     Indication: HYPERSENSITIVITY
     Dosage: 5 MG, UNK
     Route: 048
  5. OMEPRAZOLE [Concomitant]
     Indication: GASTROINTESTINAL DISORDER
     Dosage: 10 ML, 2X/DAY
     Route: 048
     Dates: start: 201303, end: 20130413
  6. CARAFATE [Concomitant]
     Indication: GASTROINTESTINAL DISORDER
     Dosage: 4 ML, 2X/DAY
     Route: 048
     Dates: start: 201303, end: 20130402
  7. ZOFRAN [Concomitant]
     Indication: NAUSEA
     Dosage: UNK
     Route: 048
     Dates: start: 2013, end: 201304
  8. ALLINIA [Concomitant]
     Indication: DIARRHOEA
     Dosage: UNK
     Route: 048
     Dates: start: 20130412, end: 20130412
  9. BENADRYL [Concomitant]
     Indication: RASH
     Dosage: UNK
     Route: 048
     Dates: start: 20130409, end: 20130412
  10. MELATONIN [Concomitant]
     Indication: INSOMNIA
     Dosage: UNK
     Route: 048

REACTIONS (7)
  - Agitation [Recovered/Resolved]
  - Mental status changes [Recovered/Resolved]
  - Toxicity to various agents [Recovered/Resolved]
  - Anticholinergic syndrome [Recovered/Resolved]
  - Nausea [Recovered/Resolved]
  - Vomiting [Recovered/Resolved]
  - Diarrhoea [Recovered/Resolved]
